FAERS Safety Report 16958439 (Version 3)
Quarter: 2019Q4

REPORT INFORMATION
  Report Type: Spontaneous
  Country: US (occurrence: US)
  Receive Date: 20191024
  Receipt Date: 20191119
  Transmission Date: 20200122
  Serious: No
  Sender: FDA-Public Use
  Company Number: US-SHIRE-US201935415

PATIENT
  Sex: Female

DRUGS (1)
  1. FIRAZYR [Suspect]
     Active Substance: ICATIBANT ACETATE
     Indication: HEREDITARY ANGIOEDEMA
     Dosage: 30 MILLIGRAM, AS REQ^D
     Route: 058

REACTIONS (6)
  - Drug hypersensitivity [Unknown]
  - Hereditary angioedema [Unknown]
  - Injection site pain [Unknown]
  - Needle issue [Unknown]
  - Headache [Unknown]
  - Product availability issue [Unknown]
